FAERS Safety Report 19019863 (Version 4)
Quarter: 2021Q2

REPORT INFORMATION
  Report Type: Report from Study
  Country: US (occurrence: US)
  Receive Date: 20210317
  Receipt Date: 20210527
  Transmission Date: 20210717
  Serious: Yes (Hospitalization)
  Sender: FDA-Public Use
  Company Number: NVSC2021US057431

PATIENT
  Age: 84 Year
  Sex: Female

DRUGS (2)
  1. CARVEDILOL. [Suspect]
     Active Substance: CARVEDILOL
     Indication: PRODUCT USED FOR UNKNOWN INDICATION
     Dosage: UNK
     Route: 065
  2. ENTRESTO [Suspect]
     Active Substance: SACUBITRIL\VALSARTAN
     Indication: CARDIAC FAILURE
     Dosage: 50 MG, BID (24/26 MG)
     Route: 048
     Dates: start: 20210201

REACTIONS (9)
  - Dysphemia [Unknown]
  - Asthenia [Unknown]
  - Fatigue [Unknown]
  - Urinary tract infection [Recovering/Resolving]
  - Gait disturbance [Unknown]
  - Pyrexia [Recovering/Resolving]
  - Memory impairment [Unknown]
  - Hypotension [Not Recovered/Not Resolved]
  - Product dose omission issue [Unknown]

NARRATIVE: CASE EVENT DATE: 20210224
